FAERS Safety Report 4840770-1 (Version None)
Quarter: 2005Q4

REPORT INFORMATION
  Report Type: 
  Country: None (occurrence: None)
  Receive Date: 20051130
  Receipt Date: 20051121
  Transmission Date: 20060501
  Serious: Yes (Hospitalization)
  Sender: FDA-Public Use
  Company Number: 2005UW17701

PATIENT
  Age: 35 Year
  Sex: Male

DRUGS (1)
  1. CRESTOR [Suspect]
     Route: 048

REACTIONS (4)
  - ABDOMINAL PAIN [None]
  - CHEMICAL INJURY [None]
  - LIVER FUNCTION TEST ABNORMAL [None]
  - NAUSEA [None]
